FAERS Safety Report 20141081 (Version 1)
Quarter: 2021Q4

REPORT INFORMATION
  Report Type: Spontaneous
  Country: US (occurrence: None)
  Receive Date: 20211201
  Receipt Date: 20211201
  Transmission Date: 20220303
  Serious: Yes (Hospitalization)
  Sender: FDA-Public Use
  Company Number: None

PATIENT

DRUGS (1)
  1. TYVASO [Suspect]
     Active Substance: TREPROSTINIL
     Route: 055

REACTIONS (4)
  - Dose calculation error [None]
  - Wrong technique in product usage process [None]
  - Incorrect dose administered [None]
  - Illness [None]
